FAERS Safety Report 8394833-7 (Version None)
Quarter: 2012Q2

REPORT INFORMATION
  Report Type: 
  Country: None (occurrence: None)
  Receive Date: 20120524
  Receipt Date: 20120510
  Transmission Date: 20120825
  Serious: Yes (Death, Hospitalization)
  Sender: FDA-Public Use
  Company Number: USA/USA/12/0024436

PATIENT
  Age: 65 Year
  Sex: Male

DRUGS (5)
  1. OLANZAPINE [Suspect]
     Indication: AGGRESSION
     Dosage: 30 MG, 1 D, UNKNOWN 10 MG, 1 D, UNKNOWN
  2. OLANZAPINE [Suspect]
     Indication: PSYCHOTIC DISORDER
     Dosage: 30 MG, 1 D, UNKNOWN 10 MG, 1 D, UNKNOWN
  3. OLANZAPINE [Suspect]
     Indication: RESTLESSNESS
     Dosage: 30 MG, 1 D, UNKNOWN 10 MG, 1 D, UNKNOWN
  4. DOCUSATE SODIUM (DOCUSATE SODIUM) [Concomitant]
  5. CLOZAPINE [Suspect]
     Indication: SCHIZOPHRENIA
     Dosage: SEE IMAGE

REACTIONS (4)
  - PSYCHOTIC BEHAVIOUR [None]
  - ILEUS [None]
  - DIVERTICULUM [None]
  - ILEUS PARALYTIC [None]
